FAERS Safety Report 9501231 (Version 1)
Quarter: 2013Q3

REPORT INFORMATION
  Report Type: Report from Study
  Country: US (occurrence: US)
  Receive Date: 20130905
  Receipt Date: 20130905
  Transmission Date: 20140515
  Serious: Yes (Other)
  Sender: FDA-Public Use
  Company Number: US-ACTELION-A-US2013-87783

PATIENT
  Age: 66 Year
  Sex: Female

DRUGS (2)
  1. VELETRI [Suspect]
     Indication: COR PULMONALE CHRONIC
     Dosage: 8 NG/KG, PER MIN
     Route: 042
     Dates: start: 20130821
  2. SILDENAFIL [Concomitant]

REACTIONS (4)
  - Angina pectoris [Unknown]
  - Troponin increased [Unknown]
  - Device leakage [Unknown]
  - Catheter site haemorrhage [Unknown]
